FAERS Safety Report 18158585 (Version 7)
Quarter: 2021Q1

REPORT INFORMATION
  Report Type: Report from Study
  Country: US (occurrence: US)
  Receive Date: 20200817
  Receipt Date: 20210212
  Transmission Date: 20210419
  Serious: Yes (Life-Threatening)
  Sender: FDA-Public Use
  Company Number: US-ROCHE-2658622

PATIENT
  Age: 37 Year
  Sex: Female
  Weight: 78 kg

DRUGS (90)
  1. TOCILIZUMAB. [Suspect]
     Active Substance: TOCILIZUMAB
     Indication: COVID-19 PNEUMONIA
     Dosage: DATE OF MOST RECENT DOSE OF TOCILIZUMAB PRIOR TO SAE ONSET 13/JUL/2020 AT 21.54
     Route: 042
     Dates: start: 20200713
  2. ACETAMINOPHEN. [Concomitant]
     Active Substance: ACETAMINOPHEN
     Indication: PAIN
     Dates: start: 20200709, end: 20200713
  3. INSULIN LISPRO [Concomitant]
     Active Substance: INSULIN LISPRO
     Dosage: BEF MEALS
     Dates: start: 20200709, end: 20200711
  4. INSULIN REGULAR [Concomitant]
     Active Substance: INSULIN NOS
     Indication: DIABETES MELLITUS
     Dates: start: 20200712, end: 20200715
  5. FUROSEMIDE. [Concomitant]
     Active Substance: FUROSEMIDE
     Indication: POLYURIA
     Dates: start: 20200712, end: 20200714
  6. FUROSEMIDE. [Concomitant]
     Active Substance: FUROSEMIDE
     Dates: start: 20200726, end: 20200727
  7. PROPOFOL. [Concomitant]
     Active Substance: PROPOFOL
     Indication: SEDATION
     Dates: start: 20200712, end: 20200712
  8. HYDROCORTISONE. [Concomitant]
     Active Substance: HYDROCORTISONE
     Indication: SHOCK
     Dates: start: 20200715, end: 20200717
  9. VANCOMYCIN [Concomitant]
     Active Substance: VANCOMYCIN
     Dates: start: 20200728, end: 20200730
  10. OXYGEN. [Concomitant]
     Active Substance: OXYGEN
     Route: 007
     Dates: start: 20200717
  11. OXYGEN. [Concomitant]
     Active Substance: OXYGEN
     Route: 007
     Dates: start: 20200722
  12. ACETAMINOPHEN. [Concomitant]
     Active Substance: ACETAMINOPHEN
     Indication: PYREXIA
     Dates: start: 20200727, end: 20200804
  13. ONDANSETRON [Concomitant]
     Active Substance: ONDANSETRON
     Indication: VOMITING
  14. ROCURONIUM [Concomitant]
     Active Substance: ROCURONIUM BROMIDE
     Indication: MUSCLE RELAXANT THERAPY
     Dates: start: 20200712, end: 20200718
  15. ENOXAPARIN [Concomitant]
     Active Substance: ENOXAPARIN
     Indication: DEEP VEIN THROMBOSIS
     Dates: start: 20200712, end: 20200714
  16. NOREPINEPHRINE. [Concomitant]
     Active Substance: NOREPINEPHRINE
     Dates: start: 20200712, end: 20200712
  17. KETAMINE [Concomitant]
     Active Substance: KETAMINE
     Indication: SEDATION
     Dates: start: 20200715, end: 20200719
  18. OXYGEN. [Concomitant]
     Active Substance: OXYGEN
     Dosage: 40 L/MIN
     Route: 055
     Dates: start: 20200729
  19. OXYGEN. [Concomitant]
     Active Substance: OXYGEN
     Dosage: 30 L/MIN
     Route: 055
     Dates: start: 20200727
  20. OXYGEN. [Concomitant]
     Active Substance: OXYGEN
     Route: 007
     Dates: start: 20200713
  21. OXYGEN. [Concomitant]
     Active Substance: OXYGEN
     Route: 007
     Dates: start: 20200714
  22. OXYGEN. [Concomitant]
     Active Substance: OXYGEN
     Route: 007
     Dates: start: 20200729
  23. OXYGEN. [Concomitant]
     Active Substance: OXYGEN
     Route: 007
     Dates: start: 20200713
  24. OXYGEN. [Concomitant]
     Active Substance: OXYGEN
     Route: 007
     Dates: start: 20200713
  25. REMDESIVIR. [Suspect]
     Active Substance: REMDESIVIR
     Indication: COVID-19 PNEUMONIA
     Dosage: DATE OF MOST RECENT DOSE OF REMDESIVIR PRIOR TO SAE ONSET 14/JUL/2020 AT 20.17 AND ENDED ON 21:17
     Route: 042
     Dates: start: 20200713
  26. INSULIN LISPRO [Concomitant]
     Active Substance: INSULIN LISPRO
     Dates: start: 20200724, end: 20200729
  27. MORPHINE [Concomitant]
     Active Substance: MORPHINE
     Indication: PAIN
     Dates: start: 20200709, end: 20200709
  28. INSULIN DETEMIR [Concomitant]
     Active Substance: INSULIN DETEMIR
     Indication: DIABETES MELLITUS
     Dates: start: 20200710, end: 20200726
  29. INSULIN REGULAR [Concomitant]
     Active Substance: INSULIN NOS
     Dates: start: 20200723, end: 20200723
  30. INSULIN REGULAR [Concomitant]
     Active Substance: INSULIN NOS
     Dates: start: 20200729, end: 20200730
  31. ROCURONIUM [Concomitant]
     Active Substance: ROCURONIUM BROMIDE
     Dates: start: 20200712, end: 20200712
  32. NOREPINEPHRINE. [Concomitant]
     Active Substance: NOREPINEPHRINE
     Dates: start: 20200714, end: 20200718
  33. MIDAZOLAM. [Concomitant]
     Active Substance: MIDAZOLAM
     Dates: start: 20200714, end: 20200716
  34. MIDAZOLAM. [Concomitant]
     Active Substance: MIDAZOLAM
     Dates: start: 20200729, end: 20200729
  35. SODIUM BICARBONATE. [Concomitant]
     Active Substance: SODIUM BICARBONATE
     Indication: ACIDOSIS
     Dates: start: 20200715, end: 20200715
  36. METRONIDAZOLE. [Concomitant]
     Active Substance: METRONIDAZOLE
     Dates: start: 20200720, end: 20200722
  37. OXYGEN. [Concomitant]
     Active Substance: OXYGEN
     Route: 007
     Dates: start: 20200721
  38. OXYGEN. [Concomitant]
     Active Substance: OXYGEN
     Dosage: 40 L/MIN
     Route: 055
     Dates: start: 20200728
  39. OXYGEN. [Concomitant]
     Active Substance: OXYGEN
     Route: 007
     Dates: start: 20200715
  40. ACETAMINOPHEN. [Concomitant]
     Active Substance: ACETAMINOPHEN
     Dates: start: 20200727, end: 20200804
  41. INSULIN REGULAR [Concomitant]
     Active Substance: INSULIN NOS
     Dates: start: 20200715, end: 20200724
  42. FENTANYL. [Concomitant]
     Active Substance: FENTANYL
     Indication: SEDATION
     Dates: start: 20200712, end: 20200723
  43. FUROSEMIDE. [Concomitant]
     Active Substance: FUROSEMIDE
     Dates: start: 20200719, end: 20200720
  44. PROPOFOL. [Concomitant]
     Active Substance: PROPOFOL
     Indication: MUSCLE RELAXANT THERAPY
  45. HEPARIN [Concomitant]
     Active Substance: HEPARIN SODIUM
     Indication: DEEP VEIN THROMBOSIS
     Dates: start: 20200715, end: 20200721
  46. DEXAMETHASONE. [Concomitant]
     Active Substance: DEXAMETHASONE
     Indication: COVID-19 PNEUMONIA
     Dates: start: 20200723, end: 20200724
  47. OXYGEN. [Concomitant]
     Active Substance: OXYGEN
     Dosage: 30 L/MIN
     Route: 055
     Dates: start: 20200726
  48. OXYGEN. [Concomitant]
     Active Substance: OXYGEN
     Route: 007
     Dates: start: 20200716
  49. OXYGEN. [Concomitant]
     Active Substance: OXYGEN
     Dosage: 40 L/MIN
     Route: 055
     Dates: start: 20200725
  50. ONDANSETRON [Concomitant]
     Active Substance: ONDANSETRON
     Indication: NAUSEA
     Dates: start: 20200709, end: 20200712
  51. LISINOPRIL. [Concomitant]
     Active Substance: LISINOPRIL
     Indication: HYPERTENSION
     Dates: start: 20200709, end: 20200709
  52. FAMOTIDINE. [Concomitant]
     Active Substance: FAMOTIDINE
     Indication: GASTROOESOPHAGEAL REFLUX DISEASE
     Dates: start: 20200712, end: 20200724
  53. VANCOMYCIN [Concomitant]
     Active Substance: VANCOMYCIN
     Dates: start: 20200715, end: 20200721
  54. CEFEPIME [Concomitant]
     Active Substance: CEFEPIME HYDROCHLORIDE
     Dates: start: 20200715, end: 20200722
  55. IBUPROFEN. [Concomitant]
     Active Substance: IBUPROFEN
     Indication: PAIN
     Dates: start: 20200724, end: 20200724
  56. OXYGEN. [Concomitant]
     Active Substance: OXYGEN
     Dosage: 40 L/MIN
     Route: 055
     Dates: start: 20200725
  57. OXYGEN. [Concomitant]
     Active Substance: OXYGEN
     Dosage: 30 L/MIN
     Route: 055
     Dates: start: 20200727
  58. NORCO [Concomitant]
     Active Substance: ACETAMINOPHEN\HYDROCODONE BITARTRATE
     Indication: PAIN
     Dates: start: 20200710, end: 20200711
  59. AMPICILLIN;SULBACTAM [Concomitant]
     Active Substance: AMPICILLIN SODIUM\SULBACTAM SODIUM
     Indication: KLEBSIELLA INFECTION
     Dates: start: 20200717, end: 20200720
  60. IBUPROFEN. [Concomitant]
     Active Substance: IBUPROFEN
     Indication: PYREXIA
  61. ALBUTEROL. [Concomitant]
     Active Substance: ALBUTEROL
     Dates: start: 20200728, end: 20200731
  62. OXYGEN. [Concomitant]
     Active Substance: OXYGEN
     Route: 007
     Dates: start: 20200718
  63. OXYGEN. [Concomitant]
     Active Substance: OXYGEN
     Dosage: 30 L/MIN
     Route: 055
     Dates: start: 20200726
  64. OXYGEN. [Concomitant]
     Active Substance: OXYGEN
     Route: 007
     Dates: start: 20200719
  65. OXYGEN. [Concomitant]
     Active Substance: OXYGEN
     Dosage: 40 L/MIN
     Route: 055
     Dates: start: 20200724
  66. OXYGEN. [Concomitant]
     Active Substance: OXYGEN
     Route: 007
     Dates: start: 20200721
  67. ATORVASTATIN [Concomitant]
     Active Substance: ATORVASTATIN
     Indication: HYPERLIPIDAEMIA
     Dates: start: 20200710, end: 20200721
  68. ENOXAPARIN [Concomitant]
     Active Substance: ENOXAPARIN
     Dates: start: 20200724, end: 20200731
  69. MIDAZOLAM. [Concomitant]
     Active Substance: MIDAZOLAM
     Indication: SEDATION
     Dates: start: 20200712, end: 20200712
  70. FLOLAN [Concomitant]
     Active Substance: EPOPROSTENOL SODIUM
     Indication: PULMONARY ARTERIAL HYPERTENSION
     Dates: start: 20200715, end: 20200716
  71. VASOPRESSIN. [Concomitant]
     Active Substance: VASOPRESSIN
     Dates: start: 20200715, end: 20200716
  72. HYDRALAZINE [Concomitant]
     Active Substance: HYDRALAZINE HYDROCHLORIDE
     Indication: HYPERTENSION
     Dates: start: 20200722, end: 20200724
  73. LABETALOL [Concomitant]
     Active Substance: LABETALOL\LABETALOL HYDROCHLORIDE
     Indication: HYPERTENSION
     Dates: start: 20200722, end: 20200722
  74. DOXYCYCLINE. [Concomitant]
     Active Substance: DOXYCYCLINE
     Dates: start: 20200728, end: 20200730
  75. CEFEPIME [Concomitant]
     Active Substance: CEFEPIME HYDROCHLORIDE
     Dates: start: 20200728, end: 20200730
  76. OXYGEN. [Concomitant]
     Active Substance: OXYGEN
     Dosage: 30 L/MIN
     Route: 055
     Dates: start: 20200728
  77. OXYGEN. [Concomitant]
     Active Substance: OXYGEN
     Dosage: 40 L/MIN
     Route: 055
     Dates: start: 20200724
  78. OXYGEN. [Concomitant]
     Active Substance: OXYGEN
     Route: 007
     Dates: start: 20200720
  79. OXYGEN. [Concomitant]
     Active Substance: OXYGEN
     Route: 007
     Dates: start: 20200718
  80. OXYGEN. [Concomitant]
     Active Substance: OXYGEN
     Route: 007
     Dates: start: 20200714
  81. OXYGEN. [Concomitant]
     Active Substance: OXYGEN
     Route: 007
     Dates: start: 20200713
  82. OXYGEN. [Concomitant]
     Active Substance: OXYGEN
     Route: 007
     Dates: start: 20200722
  83. INSULIN LISPRO [Concomitant]
     Active Substance: INSULIN LISPRO
     Indication: DIABETES MELLITUS
     Dosage: BEDTIME
     Dates: start: 20200709, end: 20200711
  84. OXYGEN. [Concomitant]
     Active Substance: OXYGEN
     Route: 007
     Dates: start: 20200715
  85. OXYGEN. [Concomitant]
     Active Substance: OXYGEN
     Route: 007
     Dates: start: 20200719
  86. OXYGEN. [Concomitant]
     Active Substance: OXYGEN
     Route: 007
     Dates: start: 20200716
  87. OXYGEN. [Concomitant]
     Active Substance: OXYGEN
     Route: 007
     Dates: start: 20200723
  88. OXYGEN. [Concomitant]
     Active Substance: OXYGEN
     Route: 007
     Dates: start: 20200720
  89. OXYGEN. [Concomitant]
     Active Substance: OXYGEN
     Dosage: 40 L/MIN
     Route: 055
     Dates: start: 20200723
  90. OXYGEN. [Concomitant]
     Active Substance: OXYGEN
     Route: 007
     Dates: start: 20200717

REACTIONS (3)
  - Acute kidney injury [Recovered/Resolved]
  - Cardio-respiratory arrest [Recovered/Resolved]
  - Septic shock [Recovered/Resolved]

NARRATIVE: CASE EVENT DATE: 20200715
